FAERS Safety Report 25596254 (Version 2)
Quarter: 2025Q3

REPORT INFORMATION
  Report Type: Spontaneous
  Country: CN (occurrence: CN)
  Receive Date: 20250723
  Receipt Date: 20250814
  Transmission Date: 20251020
  Serious: No
  Sender: MYLAN
  Company Number: CN-MYLANLABS-2025M1058709

PATIENT

DRUGS (2)
  1. XALATAN [Suspect]
     Active Substance: LATANOPROST
     Indication: Product used for unknown indication
  2. XALATAN [Suspect]
     Active Substance: LATANOPROST

REACTIONS (2)
  - Product delivery mechanism issue [Unknown]
  - Product quality issue [Unknown]
